FAERS Safety Report 18712351 (Version 1)
Quarter: 2021Q1

REPORT INFORMATION
  Report Type: Spontaneous
  Country: BE (occurrence: BE)
  Receive Date: 20210107
  Receipt Date: 20210107
  Transmission Date: 20210419
  Serious: Yes (Other)
  Sender: FDA-Public Use
  Company Number: BE-GLAXOSMITHKLINE-BE2020GSK256337

PATIENT
  Age: 40 Year
  Sex: Male

DRUGS (1)
  1. ATOVAQUONE + PROGUANIL HYDROCHLORIDE [Suspect]
     Active Substance: ATOVAQUONE\PROGUANIL HYDROCHLORIDE
     Indication: MALARIA PROPHYLAXIS
     Dosage: UNK

REACTIONS (13)
  - Pancytopenia [Unknown]
  - Pyrexia [Unknown]
  - C-reactive protein increased [Unknown]
  - Alopecia [Unknown]
  - Dysphagia [Unknown]
  - Contraindicated product administered [Unknown]
  - Rash erythematous [Unknown]
  - Weight decreased [Unknown]
  - Palpable purpura [Unknown]
  - Pharyngotonsillitis [Unknown]
  - Anaemia megaloblastic [Unknown]
  - Toxicity to various agents [Unknown]
  - Contraindicated product prescribed [Unknown]
